FAERS Safety Report 7341216-4 (Version None)
Quarter: 2011Q1

REPORT INFORMATION
  Report Type: 
  Country: None (occurrence: None)
  Receive Date: 20110309
  Receipt Date: 20110303
  Transmission Date: 20110831
  Serious: Yes (Other)
  Sender: FDA-Public Use
  Company Number: IE-BRISTOL-MYERS SQUIBB COMPANY-15569874

PATIENT
  Age: 184 Day
  Sex: Male
  Weight: 2 kg

DRUGS (3)
  1. ATAZANAVIR [Suspect]
     Route: 064
     Dates: start: 20100610, end: 20100821
  2. COMBIVIR [Suspect]
     Route: 064
     Dates: start: 20100610, end: 20100821
  3. RITONAVIR [Suspect]
     Route: 064
     Dates: start: 20100610, end: 20100821

REACTIONS (2)
  - CEREBRAL PALSY [None]
  - HYPOXIC-ISCHAEMIC ENCEPHALOPATHY [None]
